FAERS Safety Report 19208660 (Version 1)
Quarter: 2021Q2

REPORT INFORMATION
  Report Type: Other
  Country: CN (occurrence: CN)
  Receive Date: 20210503
  Receipt Date: 20210503
  Transmission Date: 20210717
  Serious: Yes (Other)
  Sender: FDA-Public Use
  Company Number: CN-GE HEALTHCARE LIFE SCIENCES-2021CSU002015

PATIENT

DRUGS (4)
  1. OMNISCAN [Suspect]
     Active Substance: GADODIAMIDE
     Indication: MAGNETIC RESONANCE IMAGING
     Dosage: 4.305 GM (15 ML), SINGLE
     Route: 042
     Dates: start: 20210407, end: 20210407
  2. OMNISCAN [Suspect]
     Active Substance: GADODIAMIDE
     Indication: BREAST SCAN
  3. OMNISCAN [Suspect]
     Active Substance: GADODIAMIDE
     Indication: BREAST CANCER
  4. NORMAL SALINE [Concomitant]
     Active Substance: SODIUM CHLORIDE
     Indication: MEDICATION DILUTION
     Dosage: 100 ML, QD
     Route: 042
     Dates: start: 20210407, end: 20210407

REACTIONS (5)
  - Cough [Recovering/Resolving]
  - Papule [Recovering/Resolving]
  - Erythema [Recovering/Resolving]
  - Dyspnoea [Recovering/Resolving]
  - Pruritus [Recovering/Resolving]

NARRATIVE: CASE EVENT DATE: 20210407
